FAERS Safety Report 6570679-7 (Version None)
Quarter: 2010Q1

REPORT INFORMATION
  Report Type: 
  Country: None (occurrence: None)
  Receive Date: 20100204
  Receipt Date: 20100127
  Transmission Date: 20100710
  Serious: Yes (Death)
  Sender: FDA-Public Use
  Company Number: A0841993A

PATIENT
  Sex: Male
  Weight: 62 kg

DRUGS (2)
  1. TOPOTECAN [Suspect]
     Dosage: 1.1MGM2 PER DAY
     Route: 048
     Dates: start: 20100112
  2. RADIOTHERAPY [Suspect]
     Dosage: 3GY PER DAY
     Route: 061
     Dates: start: 20100112, end: 20100122

REACTIONS (2)
  - DIARRHOEA [None]
  - PYREXIA [None]
